FAERS Safety Report 19287377 (Version 2)
Quarter: 2021Q3

REPORT INFORMATION
  Report Type: Report from Study
  Country: CA (occurrence: CA)
  Receive Date: 20210521
  Receipt Date: 20210916
  Transmission Date: 20211014
  Serious: Yes (Hospitalization, Other)
  Sender: FDA-Public Use
  Company Number: CA-BAYER-2020-285158

PATIENT
  Sex: Female

DRUGS (9)
  1. OMEGA?3 NOS [Concomitant]
     Active Substance: OMEGA-3 FATTY ACIDS
     Dosage: DAILY
     Route: 048
  2. STIVARGA [Suspect]
     Active Substance: REGORAFENIB
     Indication: COLORECTAL CANCER METASTATIC
     Dosage: 160MG, QD 1 WEEK
  3. APIXABAN [Concomitant]
     Active Substance: APIXABAN
     Dosage: 2.5 MG, BID
     Route: 048
  4. SENOKOT [Concomitant]
     Active Substance: SENNOSIDES
     Dosage: 1?2 TABLETS, BID
     Route: 048
  5. STIVARGA [Suspect]
     Active Substance: REGORAFENIB
     Indication: COLORECTAL CANCER METASTATIC
     Dosage: 80 MG, QD 1 WEEK
     Dates: start: 20210112, end: 20210528
  6. UBIDECARENONE. [Concomitant]
     Active Substance: UBIDECARENONE
     Dosage: UNK, UNK DAILY
     Route: 048
  7. VITAMINE [Concomitant]
     Active Substance: PYRIDOXINE HYDROCHLORIDE
     Dosage: 1000 IU DAILY
     Route: 048
  8. HYDROMORPHONE [Concomitant]
     Active Substance: HYDROMORPHONE
     Dosage: 1 MG, Q2HR PRN
     Route: 048
  9. STIVARGA [Suspect]
     Active Substance: REGORAFENIB
     Indication: COLORECTAL CANCER METASTATIC
     Dosage: 120 MG, QD 1 WEEK

REACTIONS (8)
  - Small intestinal obstruction [None]
  - Peritoneal hernia [None]
  - Metastases to peritoneum [None]
  - Product supply issue [None]
  - Unevaluable event [None]
  - Constipation [None]
  - Colorectal cancer metastatic [None]
  - Off label use [Unknown]
